FAERS Safety Report 12597736 (Version 2)
Quarter: 2016Q3

REPORT INFORMATION
  Report Type: Spontaneous
  Country: JP (occurrence: JP)
  Receive Date: 20160726
  Receipt Date: 20160811
  Transmission Date: 20161109
  Serious: Yes (Other)
  Sender: FDA-Public Use
  Company Number: JP-BEH-2016071378

PATIENT
  Age: 65 Year
  Sex: Male

DRUGS (2)
  1. ALBUMINAR-25 [Suspect]
     Active Substance: ALBUMIN HUMAN
     Dosage: 2 VIALS/DAY
     Route: 042
     Dates: start: 20160707, end: 20160709
  2. ALBUMINAR-25 [Suspect]
     Active Substance: ALBUMIN HUMAN
     Indication: HYPOALBUMINAEMIA
     Dosage: 1 VIAL/DAY
     Route: 042
     Dates: start: 20160704, end: 20160706

REACTIONS (1)
  - Acute kidney injury [Not Recovered/Not Resolved]

NARRATIVE: CASE EVENT DATE: 20160711
